FAERS Safety Report 15984069 (Version 1)
Quarter: 2019Q1

REPORT INFORMATION
  Report Type: Spontaneous
  Country: US (occurrence: US)
  Receive Date: 20190219
  Receipt Date: 20190219
  Transmission Date: 20190418
  Serious: Yes (Other)
  Sender: FDA-Public Use
  Company Number: None

PATIENT
  Age: 68 Year
  Sex: Female
  Weight: 76.5 kg

DRUGS (12)
  1. NAPROXEN. [Concomitant]
     Active Substance: NAPROXEN
  2. TYLENOL [Concomitant]
     Active Substance: ACETAMINOPHEN
  3. MVI [Concomitant]
     Active Substance: VITAMINS
  4. IRON COMPLEX [Concomitant]
  5. ZINC. [Concomitant]
     Active Substance: ZINC
  6. LETROZOLE. [Suspect]
     Active Substance: LETROZOLE
     Indication: BREAST CANCER FEMALE
     Route: 048
     Dates: start: 20181030
  7. CALCIUM [Concomitant]
     Active Substance: CALCIUM
  8. MARIJUANA [Concomitant]
     Active Substance: CANNABIS SATIVA SUBSP. INDICA TOP
  9. HYDROCHLOROTHYAZIDE [Concomitant]
     Active Substance: HYDROCHLOROTHIAZIDE
  10. IBRANCE [Suspect]
     Active Substance: PALBOCICLIB
     Indication: BREAST CANCER FEMALE
     Dosage: ?          OTHER FREQUENCY:DAILY -21 DAYS;?
     Route: 048
     Dates: start: 20181030
  11. CBD OIL [Concomitant]
     Active Substance: CANNABIDIOL\HERBALS
  12. AMIODARONE [Concomitant]
     Active Substance: AMIODARONE

REACTIONS (1)
  - Red blood cell count decreased [None]

NARRATIVE: CASE EVENT DATE: 20190219
